FAERS Safety Report 4594708-5 (Version None)
Quarter: 2005Q1

REPORT INFORMATION
  Report Type: 
  Country: None (occurrence: None)
  Receive Date: 20050301
  Receipt Date: 20050119
  Transmission Date: 20050727
  Serious: No
  Sender: FDA-Public Use
  Company Number: US-BRISTOL-MYERS SQUIBB COMPANY-12829982

PATIENT
  Age: 66 Year
  Sex: Male
  Weight: 79 kg

DRUGS (8)
  1. ERBITUX [Suspect]
     Indication: COLON CANCER METASTATIC
     Dosage: THERAPY START DATE 10-JAN-05 + GIVEN 17-JAN-05
     Route: 042
     Dates: start: 20050110
  2. BENADRYL [Concomitant]
     Indication: PREMEDICATION
     Route: 042
     Dates: start: 20050110
  3. ZOFRAN [Concomitant]
     Route: 048
  4. CPT-11 [Concomitant]
  5. MULTI-VITAMINS [Concomitant]
  6. ATENOLOL [Concomitant]
  7. LISINOPRIL [Concomitant]
  8. WARFARIN SODIUM [Concomitant]

REACTIONS (4)
  - DIARRHOEA [None]
  - NIGHT SWEATS [None]
  - PRURITUS [None]
  - RASH [None]
